FAERS Safety Report 10675001 (Version 1)
Quarter: 2014Q4

REPORT INFORMATION
  Report Type: Report from Study
  Country: CA (occurrence: CA)
  Receive Date: 20141224
  Receipt Date: 20141224
  Transmission Date: 20150529
  Serious: Yes (Other)
  Sender: FDA-Public Use
  Company Number: CA-JNJFOC-20141214079

PATIENT
  Age: 34 Year
  Sex: Male
  Weight: 119.5 kg

DRUGS (1)
  1. REMICADE [Suspect]
     Active Substance: INFLIXIMAB
     Indication: COLITIS ULCERATIVE
     Dosage: DOSING FREQUENCY: ONCE IN 6-8 WEEKS
     Route: 042
     Dates: start: 20110127

REACTIONS (3)
  - Gastritis erosive [Unknown]
  - Haematemesis [Unknown]
  - Nausea [Unknown]

NARRATIVE: CASE EVENT DATE: 201412
